FAERS Safety Report 9565697 (Version 2)
Quarter: 2013Q3

REPORT INFORMATION
  Report Type: Spontaneous
  Country: US (occurrence: US)
  Receive Date: 20130930
  Receipt Date: 20130930
  Transmission Date: 20140515
  Serious: Yes (Hospitalization)
  Sender: FDA-Public Use
  Company Number: US-BRISTOL-MYERS SQUIBB COMPANY-19008887

PATIENT
  Age: 49 Year
  Sex: Male
  Weight: 137.41 kg

DRUGS (2)
  1. BYDUREON [Suspect]
     Indication: TYPE 2 DIABETES MELLITUS
     Dosage: LOT NO:73263,EXPDT:JUN15?LOT NO:73262,EXPDT:MAR16
     Route: 058
     Dates: start: 20130612
  2. METFORMIN HCL [Suspect]
     Route: 048

REACTIONS (8)
  - Chronic obstructive pulmonary disease [Recovering/Resolving]
  - Injection site haemorrhage [Recovered/Resolved]
  - Injection site swelling [Recovered/Resolved]
  - Weight decreased [Not Recovered/Not Resolved]
  - Decreased appetite [Not Recovered/Not Resolved]
  - Injection site pruritus [Not Recovered/Not Resolved]
  - Injection site erythema [Not Recovered/Not Resolved]
  - Blood glucose increased [Recovering/Resolving]
